FAERS Safety Report 24377770 (Version 7)
Quarter: 2024Q4

REPORT INFORMATION
  Report Type: Spontaneous
  Country: US (occurrence: US)
  Receive Date: 20240930
  Receipt Date: 20241108
  Transmission Date: 20250115
  Serious: No
  Sender: ROCHE
  Company Number: US-ROCHE-10000086044

PATIENT
  Age: 60 Year
  Sex: Female
  Weight: 68.04 kg

DRUGS (4)
  1. XOLAIR [Suspect]
     Active Substance: OMALIZUMAB
     Indication: Chronic spontaneous urticaria
     Route: 058
     Dates: start: 202310, end: 202403
  2. XOLAIR [Suspect]
     Active Substance: OMALIZUMAB
     Route: 058
     Dates: start: 20240512
  3. XOLAIR [Suspect]
     Active Substance: OMALIZUMAB
     Route: 058
     Dates: start: 202403, end: 202404
  4. ZEPBOUND [Concomitant]
     Active Substance: TIRZEPATIDE
     Indication: Weight decreased
     Route: 058
     Dates: start: 2024

REACTIONS (9)
  - Pruritus [Unknown]
  - Injection site pain [Unknown]
  - Urticaria [Unknown]
  - Product dose omission issue [Unknown]
  - Accidental exposure to product [Unknown]
  - Device issue [Unknown]
  - Device malfunction [Unknown]
  - Urticaria [Unknown]
  - Off label use [Unknown]

NARRATIVE: CASE EVENT DATE: 20240101
